FAERS Safety Report 4368977-0 (Version None)
Quarter: 2004Q2

REPORT INFORMATION
  Report Type: 
  Country: None (occurrence: None)
  Receive Date: 20040527
  Receipt Date: 20040517
  Transmission Date: 20050107
  Serious: Yes (Hospitalization)
  Sender: FDA-Public Use
  Company Number: 138921USA

PATIENT
  Sex: Male

DRUGS (1)
  1. GLYBURIDE [Suspect]
     Dates: start: 20040501

REACTIONS (4)
  - PAIN [None]
  - REACTION TO DRUG EXCIPIENT [None]
  - RESPIRATORY DISTRESS [None]
  - URTICARIA GENERALISED [None]
